FAERS Safety Report 8477745-X (Version None)
Quarter: 2012Q2

REPORT INFORMATION
  Report Type: 
  Country: None (occurrence: None)
  Receive Date: 20120626
  Receipt Date: 20120626
  Transmission Date: 20120825
  Serious: No
  Sender: FDA-Public Use
  Company Number: None

PATIENT
  Age: 56 Year
  Sex: Male
  Weight: 137.9 kg

DRUGS (1)
  1. LISINOPRIL [Suspect]
     Indication: HYPERTENSION
     Dosage: 20 MG EVERY DAY PO
     Route: 048
     Dates: start: 20081209, end: 20111230

REACTIONS (7)
  - OROPHARYNGEAL PAIN [None]
  - TOOTH INFECTION [None]
  - RESPIRATORY TRACT CONGESTION [None]
  - DYSPNOEA [None]
  - PRODUCTIVE COUGH [None]
  - PHARYNGEAL DISORDER [None]
  - ANGIOEDEMA [None]
